FAERS Safety Report 13557261 (Version 2)
Quarter: 2017Q2

REPORT INFORMATION
  Report Type: Spontaneous
  Country: US (occurrence: US)
  Receive Date: 20170518
  Receipt Date: 20170601
  Transmission Date: 20170830
  Serious: No
  Sender: FDA-Public Use
  Company Number: US-BEH-2017080493

PATIENT
  Age: 69 Year
  Sex: Female
  Weight: 56.24 kg

DRUGS (1)
  1. HIZENTRA [Suspect]
     Active Substance: HUMAN IMMUNOGLOBULIN G
     Indication: HYPOGAMMAGLOBULINAEMIA
     Dosage: 5 G/25 ML, QW
     Route: 058
     Dates: start: 20150301

REACTIONS (2)
  - Cough [Unknown]
  - Bacterial infection [Unknown]

NARRATIVE: CASE EVENT DATE: 20170512
